FAERS Safety Report 18898206 (Version 1)
Quarter: 2021Q1

REPORT INFORMATION
  Report Type: Spontaneous
  Country: US (occurrence: US)
  Receive Date: 20210213
  Receipt Date: 20210213
  Transmission Date: 20210420
  Serious: Yes (Life-Threatening, Hospitalization, Disabling, Other)
  Sender: FDA-Public Use
  Company Number: None

PATIENT
  Age: 52 Year
  Sex: Female

DRUGS (1)
  1. KEYTRUDA [Suspect]
     Active Substance: PEMBROLIZUMAB
     Indication: NEOPLASM MALIGNANT
     Route: 042

REACTIONS (4)
  - Pancreatic disorder [None]
  - Type 1 diabetes mellitus [None]
  - Diabetic ketoacidosis [None]
  - Cholecystectomy [None]

NARRATIVE: CASE EVENT DATE: 20210108
